FAERS Safety Report 5018437-9 (Version None)
Quarter: 2006Q2

REPORT INFORMATION
  Report Type: 
  Country: None (occurrence: None)
  Receive Date: 20060530
  Receipt Date: 20050601
  Transmission Date: 20061013
  Serious: Yes (Death, Other)
  Sender: FDA-Public Use
  Company Number: 2005083590

PATIENT
  Sex: Female

DRUGS (1)
  1. PREGABALIN  (PREGABALIN) [Suspect]
     Indication: ILL-DEFINED DISORDER

REACTIONS (2)
  - DIZZINESS [None]
  - GENERAL PHYSICAL HEALTH DETERIORATION [None]
